FAERS Safety Report 6821061-6 (Version None)
Quarter: 2010Q3

REPORT INFORMATION
  Report Type: 
  Country: None (occurrence: None)
  Receive Date: 20100707
  Receipt Date: 20080125
  Transmission Date: 20110219
  Serious: Yes (Other)
  Sender: FDA-Public Use
  Company Number: US-PFIZER INC-2007102991

PATIENT
  Sex: Female

DRUGS (7)
  1. ZOLOFT [Suspect]
  2. KLONOPIN [Concomitant]
  3. KEPPRA [Concomitant]
  4. LAMICTAL [Concomitant]
  5. SYNTHROID [Concomitant]
  6. FOLIC ACID [Concomitant]
  7. VITAMIN K TAB [Concomitant]

REACTIONS (1)
  - CONVULSION [None]
